FAERS Safety Report 17143005 (Version 1)
Quarter: 2019Q4

REPORT INFORMATION
  Report Type: Spontaneous
  Country: US (occurrence: US)
  Receive Date: 20191211
  Receipt Date: 20191211
  Transmission Date: 20200122
  Serious: No
  Sender: FDA-Public Use
  Company Number: US-PURDUE-USA-2019-0148060

PATIENT
  Sex: Male
  Weight: 83.9 kg

DRUGS (1)
  1. HYDROMORPHONE HCL (SIMILAR TO 19-892) [Suspect]
     Active Substance: HYDROMORPHONE HYDROCHLORIDE
     Indication: PAIN
     Route: 048

REACTIONS (3)
  - Skin ulcer [Unknown]
  - Pruritus [Unknown]
  - Malaise [Unknown]

NARRATIVE: CASE EVENT DATE: 2003
